FAERS Safety Report 11290960 (Version 2)
Quarter: 2016Q3

REPORT INFORMATION
  Report Type: Spontaneous
  Country: US (occurrence: US)
  Receive Date: 20150722
  Receipt Date: 20160928
  Transmission Date: 20161109
  Serious: Yes (Hospitalization)
  Sender: FDA-Public Use
  Company Number: US-UNITED THERAPEUTICS-UNT-2015-000163

PATIENT
  Age: 44 Year
  Sex: Male
  Weight: 77.98 kg

DRUGS (5)
  1. REMODULIN [Suspect]
     Active Substance: TREPROSTINIL
     Dosage: 0.060 ?G/KG, CONTINUING
     Route: 041
     Dates: start: 20140516
  2. LETAIRIS [Suspect]
     Active Substance: AMBRISENTAN
     Indication: DRUG ABUSE
  3. ADCIRCA [Concomitant]
     Active Substance: TADALAFIL
     Indication: PRODUCT USED FOR UNKNOWN INDICATION
  4. LETAIRIS [Suspect]
     Active Substance: AMBRISENTAN
     Indication: PULMONARY HYPERTENSION
     Dosage: 10 MG, QD
     Dates: start: 20111130
  5. REMODULIN [Suspect]
     Active Substance: TREPROSTINIL
     Indication: PULMONARY ARTERIAL HYPERTENSION
     Dosage: 0.0515 ?G/KG, CONTINUING
     Route: 041
     Dates: start: 20140516

REACTIONS (5)
  - Device related infection [Not Recovered/Not Resolved]
  - Dermatitis contact [Unknown]
  - Dyspnoea [Recovered/Resolved]
  - Infection [Not Recovered/Not Resolved]
  - Injection site infection [Unknown]

NARRATIVE: CASE EVENT DATE: 201501
